FAERS Safety Report 9834105 (Version 1)
Quarter: 2014Q1

REPORT INFORMATION
  Report Type: Report from Study
  Country: US (occurrence: US)
  Receive Date: 20140122
  Receipt Date: 20140122
  Transmission Date: 20141002
  Serious: Yes (Other)
  Sender: FDA-Public Use
  Company Number: US-ROCHE-1334085

PATIENT
  Age: 62 Year
  Sex: Female
  Weight: 104.34 kg

DRUGS (19)
  1. AVASTIN [Suspect]
     Indication: COLON CANCER
     Route: 042
  2. AVASTIN [Suspect]
     Dosage: SAME DOSE RECIEVED ON 18/APR/2012
     Route: 042
     Dates: start: 20120404
  3. AVASTIN [Suspect]
     Dosage: SAME DOSE RECIEVED ON 27/JUN/2012, 10/JUL/2012 AND 27/JUL/2012
     Route: 042
     Dates: start: 20120530
  4. AVASTIN [Suspect]
     Route: 042
     Dates: start: 20121013
  5. LEUCOVORIN [Concomitant]
     Route: 042
  6. LEUCOVORIN [Concomitant]
     Route: 042
  7. FLUOROURACIL [Concomitant]
     Route: 040
  8. FLUOROURACIL [Concomitant]
     Route: 040
  9. FLUOROURACIL [Concomitant]
     Route: 041
  10. FLUOROURACIL [Concomitant]
     Route: 041
  11. OXALIPLATIN [Concomitant]
     Route: 042
  12. OXALIPLATIN [Concomitant]
     Route: 042
  13. ZOFRAN [Concomitant]
     Route: 042
  14. DECADRAN [Concomitant]
     Route: 042
  15. DECADRAN [Concomitant]
     Route: 042
  16. DECADRAN [Concomitant]
     Route: 042
  17. CALCIUM GLUCONATE [Concomitant]
     Route: 042
  18. MAGNESIUM SULFATE [Concomitant]
     Route: 042
  19. FLAGYL [Concomitant]
     Dosage: FOR 5 DAYS
     Route: 048

REACTIONS (13)
  - Metastases to lung [Not Recovered/Not Resolved]
  - Colon cancer metastatic [Not Recovered/Not Resolved]
  - Renal cell carcinoma [Not Recovered/Not Resolved]
  - Cough [Unknown]
  - Diarrhoea [Unknown]
  - Disease progression [Not Recovered/Not Resolved]
  - Lung neoplasm [Not Recovered/Not Resolved]
  - Pain [Unknown]
  - Dysgeusia [Unknown]
  - Asthenia [Unknown]
  - Dizziness [Unknown]
  - Nervousness [Unknown]
  - Blood glucose abnormal [Unknown]
